FAERS Safety Report 7357830-6 (Version None)
Quarter: 2011Q1

REPORT INFORMATION
  Report Type: 
  Country: None (occurrence: None)
  Receive Date: 20110317
  Receipt Date: 20110311
  Transmission Date: 20110831
  Serious: Yes (Hospitalization)
  Sender: FDA-Public Use
  Company Number: US-JNJFOC-20110306014

PATIENT
  Sex: Female

DRUGS (2)
  1. LEVAQUIN [Suspect]
     Indication: ANTIBIOTIC THERAPY
     Route: 065
  2. UNKNOWN MEDICATION [Concomitant]
     Indication: MULTIPLE SCLEROSIS
     Route: 065

REACTIONS (1)
  - ATRIAL FIBRILLATION [None]
